FAERS Safety Report 14359995 (Version 1)
Quarter: 2018Q1

REPORT INFORMATION
  Report Type: Spontaneous
  Country: DE (occurrence: DE)
  Receive Date: 20180105
  Receipt Date: 20180105
  Transmission Date: 20180509
  Serious: Yes (Other)
  Sender: FDA-Public Use
  Company Number: DE-BAUSCH-BL-2018-000443

PATIENT
  Age: 80 Year
  Sex: Male

DRUGS (1)
  1. ZYCLARA [Suspect]
     Active Substance: IMIQUIMOD
     Indication: PHOTOSENSITIVITY REACTION
     Dosage: 28X250MG IN 14 DAYS
     Route: 061

REACTIONS (6)
  - Oropharyngeal pain [Unknown]
  - Malaise [Unknown]
  - Burning sensation [Unknown]
  - Fatigue [Unknown]
  - Eye pruritus [Recovering/Resolving]
  - Tracheal haemorrhage [Unknown]
